FAERS Safety Report 6998038-3 (Version None)
Quarter: 2010Q3

REPORT INFORMATION
  Report Type: 
  Country: None (occurrence: None)
  Receive Date: 20100920
  Receipt Date: 20090813
  Transmission Date: 20110219
  Serious: No
  Sender: FDA-Public Use
  Company Number: US-ASTRAZENECA-2009SE08018

PATIENT
  Age: 29 Year
  Sex: Female

DRUGS (3)
  1. SEROQUEL XR [Suspect]
     Indication: BIPOLAR DISORDER
     Route: 048
     Dates: start: 20090701
  2. TRAZODONE HCL [Concomitant]
  3. PROZAC [Concomitant]

REACTIONS (1)
  - DRUG SCREEN POSITIVE [None]
